FAERS Safety Report 8827872 (Version 1)
Quarter: 2012Q4

REPORT INFORMATION
  Report Type: 
  Country: GB (occurrence: GB)
  Receive Date: 20121005
  Receipt Date: 20121005
  Transmission Date: 20130627
  Serious: Yes (Other)
  Sender: FDA-Public Use
  Company Number: GB-B.I. PHARMACEUTICALS,INC./RIDGEFIELD-2012-UK-01273UK

PATIENT
  Age: 81 Year
  Sex: Male
  Weight: 84 kg

DRUGS (7)
  1. DABIGATRAN [Suspect]
     Dates: start: 20120625
  2. BIOSOPROLOL [Concomitant]
     Dates: start: 20120803, end: 20120831
  3. BIOSOPROLOL [Concomitant]
     Dates: start: 20120531, end: 20120723
  4. DIPYRIDAMOL [Concomitant]
     Dates: start: 20120914
  5. DIPYRIDAMOL [Concomitant]
     Dates: start: 20120531, end: 20120630
  6. LANSOPRAZOLE [Concomitant]
     Dates: start: 20120625, end: 20120723
  7. RAMIPRIL [Concomitant]
     Dates: start: 20120625, end: 20120723

REACTIONS (2)
  - Confusional state [Recovered/Resolved]
  - Hallucination [Recovered/Resolved]
